FAERS Safety Report 4625855-7 (Version None)
Quarter: 2005Q2

REPORT INFORMATION
  Report Type: 
  Country: None (occurrence: None)
  Receive Date: 20050404
  Receipt Date: 20050322
  Transmission Date: 20051028
  Serious: Yes (Life-Threatening, Hospitalization)
  Sender: FDA-Public Use
  Company Number: 200512649GDDC

PATIENT
  Age: 72 Year
  Sex: Female

DRUGS (6)
  1. EUGLUCON [Suspect]
     Indication: DIABETES MELLITUS
     Route: 048
     Dates: start: 20020615, end: 20041222
  2. DIANBEN [Suspect]
     Indication: DIABETES MELLITUS
     Route: 048
     Dates: start: 20031115, end: 20041228
  3. SEGURIL [Concomitant]
     Dosage: DOSE: UNK
     Dates: start: 20030615, end: 20041203
  4. COZAAR [Concomitant]
     Dosage: DOSE: UNK
     Dates: start: 20010615, end: 20041203
  5. SINTROM [Concomitant]
     Dosage: DOSE: UNK
     Dates: start: 20041215
  6. LEVOTHROID [Concomitant]
     Dosage: DOSE: UNK
     Dates: start: 19990615

REACTIONS (5)
  - CEREBELLAR INFARCTION [None]
  - DIZZINESS [None]
  - EXTRASYSTOLES [None]
  - NAUSEA [None]
  - VOMITING [None]
